FAERS Safety Report 24337155 (Version 2)
Quarter: 2024Q4

REPORT INFORMATION
  Report Type: Spontaneous
  Country: FR (occurrence: FR)
  Receive Date: 20240919
  Receipt Date: 20241024
  Transmission Date: 20250114
  Serious: No
  Sender: UCB
  Company Number: FR-UCBSA-2024046851

PATIENT
  Age: 56 Year
  Sex: Female

DRUGS (1)
  1. NEUPRO [Suspect]
     Active Substance: ROTIGOTINE
     Indication: Restless legs syndrome
     Dosage: 2 MILLIGRAM, ONCE DAILY (QD)
     Route: 062
     Dates: start: 20240301

REACTIONS (2)
  - Therapeutic product ineffective [Unknown]
  - Product lot number issue [Unknown]

NARRATIVE: CASE EVENT DATE: 20240301
